FAERS Safety Report 8596098-X (Version None)
Quarter: 2012Q3

REPORT INFORMATION
  Report Type: 
  Country: None (occurrence: None)
  Receive Date: 20120815
  Receipt Date: 20120801
  Transmission Date: 20120928
  Serious: Yes (Other)
  Sender: FDA-Public Use
  Company Number: NO-ROCHE-1082105

PATIENT
  Sex: Male

DRUGS (10)
  1. MABTHERA [Suspect]
     Indication: RHEUMATOID ARTHRITIS
     Dates: start: 20070301
  2. METHOTREXATE [Suspect]
     Indication: TRUSS USER
  3. IMMUNE GLOBULIN INTRAVENOUS (HUMAN) [Suspect]
     Indication: WEGENER'S GRANULOMATOSIS
  4. PREDNISOLONE [Concomitant]
  5. AZATHIOPRINE SODIUM [Suspect]
     Indication: WEGENER'S GRANULOMATOSIS
  6. MABTHERA [Suspect]
     Indication: WEGENER'S GRANULOMATOSIS
     Dosage: GIVEN AFTER 2 MONTHS FROM THE EVENT
  7. IMMUNE GLOBULIN INTRAVENOUS (HUMAN) [Suspect]
     Indication: HYPOGAMMAGLOBULINAEMIA
     Route: 042
  8. METHOTREXATE [Suspect]
     Indication: WEGENER'S GRANULOMATOSIS
  9. CYCLOPHOSPHAMIDE [Suspect]
     Indication: WEGENER'S GRANULOMATOSIS
  10. CYCLOPHOSPHAMIDE [Suspect]
     Indication: PANCYTOPENIA

REACTIONS (1)
  - NEUTROPENIA [None]
